FAERS Safety Report 15384754 (Version 1)
Quarter: 2018Q3

REPORT INFORMATION
  Report Type: Spontaneous
  Country: PT (occurrence: PT)
  Receive Date: 20180914
  Receipt Date: 20180914
  Transmission Date: 20181010
  Serious: Yes (Disabling)
  Sender: FDA-Public Use
  Company Number: PT-TEVA-2018-PT-954398

PATIENT
  Age: 45 Year
  Sex: Male
  Weight: 71 kg

DRUGS (1)
  1. ENTECAVIR TEVA [Suspect]
     Active Substance: ENTECAVIR
     Indication: HEPATITIS B
     Dosage: .5 MILLIGRAM DAILY;
     Route: 048
     Dates: start: 2018

REACTIONS (3)
  - Product substitution issue [Not Recovered/Not Resolved]
  - Insomnia [Not Recovered/Not Resolved]
  - Weight decreased [Not Recovered/Not Resolved]

NARRATIVE: CASE EVENT DATE: 2018
